FAERS Safety Report 26187538 (Version 1)
Quarter: 2025Q4

REPORT INFORMATION
  Report Type: Spontaneous
  Country: EU (occurrence: EU)
  Receive Date: 20251222
  Receipt Date: 20251222
  Transmission Date: 20260117
  Serious: Yes (Hospitalization, Other)
  Sender: RECKITT BENCKISER
  Company Number: None

PATIENT

DRUGS (1)
  1. SUBUTEX [Suspect]
     Active Substance: BUPRENORPHINE HYDROCHLORIDE
     Indication: Product used for unknown indication
     Dosage: 2 MILLIGRAM, QD (SOMETIMES 1 BOX OF 7 TABLETS/DAY)
     Route: 065

REACTIONS (8)
  - Hallucination [Recovered/Resolved]
  - Delirium [Recovered/Resolved]
  - Incoherent [Recovered/Resolved]
  - Persecutory delusion [Recovered/Resolved]
  - Schizoaffective disorder [Recovering/Resolving]
  - Aggression [Recovered/Resolved]
  - Agitation [Recovered/Resolved]
  - Drug abuse [Recovering/Resolving]

NARRATIVE: CASE EVENT DATE: 20251007
